FAERS Safety Report 6016562-7 (Version None)
Quarter: 2008Q4

REPORT INFORMATION
  Report Type: 
  Country: None (occurrence: None)
  Receive Date: 20081222
  Receipt Date: 20081212
  Transmission Date: 20090506
  Serious: Yes (Hospitalization)
  Sender: FDA-Public Use
  Company Number: DE-PURDUE-USA_2008_0034585

PATIENT
  Age: 13 Year
  Sex: Male

DRUGS (3)
  1. HYDROMORPHONE HCL [Suspect]
     Indication: CANCER PAIN
     Dosage: 150 MG, DAILY
     Route: 042
     Dates: start: 20070101
  2. DIMENHYDRINATE [Concomitant]
  3. METAMIZOLE [Concomitant]
     Route: 042

REACTIONS (3)
  - HYPERAESTHESIA [None]
  - INADEQUATE ANALGESIA [None]
  - PAIN [None]
